FAERS Safety Report 6870601-X (Version None)
Quarter: 2010Q3

REPORT INFORMATION
  Report Type: 
  Country: None (occurrence: None)
  Receive Date: 20100723
  Receipt Date: 20100712
  Transmission Date: 20110219
  Serious: Yes (Other)
  Sender: FDA-Public Use
  Company Number: PHHY2010CA46607

PATIENT
  Sex: Male

DRUGS (4)
  1. ACLASTA [Suspect]
     Indication: OSTEOPOROSIS
     Dosage: UNK
     Dates: start: 20091016
  2. AMITRIPTYLINE HYDROCHLORIDE [Concomitant]
  3. CARDIZEM [Concomitant]
  4. AVAPRO [Concomitant]

REACTIONS (3)
  - CEREBROVASCULAR ACCIDENT [None]
  - HYPOTENSION [None]
  - LIP PAIN [None]
